FAERS Safety Report 9570467 (Version 3)
Quarter: 2014Q1

REPORT INFORMATION
  Report Type: Spontaneous
  Country: US (occurrence: US)
  Receive Date: 20130930
  Receipt Date: 20140102
  Transmission Date: 20141002
  Serious: No
  Sender: FDA-Public Use
  Company Number: US-AMGEN-USASP2013063413

PATIENT
  Age: 29 Year
  Sex: Female
  Weight: 61.22 kg

DRUGS (4)
  1. ENBREL [Suspect]
     Indication: RHEUMATOID ARTHRITIS
     Dosage: 50 MG, QWK
     Route: 058
  2. ACTEMRA [Suspect]
     Indication: PRODUCT USED FOR UNKNOWN INDICATION
     Dosage: UNK
     Route: 065
  3. PLAQUENIL                          /00072602/ [Concomitant]
     Dosage: 200 MG, BID
     Route: 048
  4. SULFASALAZINE [Concomitant]
     Dosage: 500 MG, BID
     Route: 048

REACTIONS (10)
  - Allergy test positive [Unknown]
  - Migraine [Recovered/Resolved]
  - Swelling face [Recovered/Resolved]
  - Hot flush [Recovered/Resolved]
  - Gingival swelling [Recovered/Resolved]
  - Laboratory test abnormal [Unknown]
  - Nodule [Recovered/Resolved]
  - Drug hypersensitivity [Recovered/Resolved]
  - Lip discolouration [Recovered/Resolved]
  - Joint swelling [Recovered/Resolved]
